FAERS Safety Report 7657230-5 (Version None)
Quarter: 2011Q3

REPORT INFORMATION
  Report Type: 
  Country: None (occurrence: None)
  Receive Date: 20110804
  Receipt Date: 20110722
  Transmission Date: 20111222
  Serious: Yes (Hospitalization, Other)
  Sender: FDA-Public Use
  Company Number: PHHY2011FR66652

PATIENT
  Sex: Male

DRUGS (9)
  1. GLEEVEC [Suspect]
     Indication: GASTROINTESTINAL STROMAL TUMOUR
     Dosage: 200 MG IN THE MORNING AND EVENING
     Route: 048
     Dates: start: 20110101, end: 20110509
  2. ENALAPRIL MALEATE [Concomitant]
  3. AMIODARONE HCL [Concomitant]
  4. EZETIMIBE [Concomitant]
  5. ASPIRIN [Concomitant]
     Dosage: 75 MG, UNK
  6. PRAVASTATIN [Concomitant]
  7. LASIX [Concomitant]
  8. ALLOPURINOL [Concomitant]
  9. DIGOXIN [Concomitant]

REACTIONS (13)
  - LEFT VENTRICULAR HYPERTROPHY [None]
  - DYSPNOEA AT REST [None]
  - CREPITATIONS [None]
  - BLOOD CREATININE INCREASED [None]
  - CONGESTIVE CARDIOMYOPATHY [None]
  - OEDEMA PERIPHERAL [None]
  - AORTIC STENOSIS [None]
  - CARDIAC FAILURE [None]
  - ACUTE RESPIRATORY FAILURE [None]
  - RENAL FAILURE ACUTE [None]
  - EYELID OEDEMA [None]
  - AORTIC VALVE INCOMPETENCE [None]
  - ATRIAL FIBRILLATION [None]
